FAERS Safety Report 8281740-3 (Version None)
Quarter: 2012Q2

REPORT INFORMATION
  Report Type: 
  Country: None (occurrence: None)
  Receive Date: 20120410
  Receipt Date: 20120326
  Transmission Date: 20120825
  Serious: Yes (Hospitalization)
  Sender: FDA-Public Use
  Company Number: DSJ-2012-05813

PATIENT
  Age: 41 Year
  Sex: Male

DRUGS (3)
  1. OLMESARTAN MEDOXOMIL [Suspect]
     Indication: HYPERTENSION
  2. ISOPROTTERENOL (ISOPRENALINE) (ISOPRENALINE) [Concomitant]
  3. ATENOLOL [Concomitant]

REACTIONS (11)
  - FATIGUE [None]
  - HEART RATE DECREASED [None]
  - SYNCOPE [None]
  - AURA [None]
  - PULSE ABSENT [None]
  - STRESS [None]
  - MUSCULAR WEAKNESS [None]
  - WOUND [None]
  - SKULL FRACTURE [None]
  - BLOOD PRESSURE SYSTOLIC DECREASED [None]
  - TRAUMATIC INTRACRANIAL HAEMORRHAGE [None]
